FAERS Safety Report 14803878 (Version 1)
Quarter: 2018Q2

REPORT INFORMATION
  Report Type: Spontaneous
  Country: US (occurrence: US)
  Receive Date: 20180425
  Receipt Date: 20180425
  Transmission Date: 20180711
  Serious: No
  Sender: FDA-Public Use
  Company Number: US-CIPLA LTD.-2016US05837

PATIENT

DRUGS (2)
  1. HYDROXYZINE [Suspect]
     Active Substance: HYDROXYZINE HYDROCHLORIDE
     Dosage: 50 MG, QID, GLENMARK
     Route: 048
  2. HYDROXYZINE [Suspect]
     Active Substance: HYDROXYZINE HYDROCHLORIDE
     Dosage: UNK, (TEVA)
     Route: 065

REACTIONS (2)
  - Drug ineffective [Unknown]
  - Product substitution issue [Unknown]
